FAERS Safety Report 7960752-0 (Version None)
Quarter: 2011Q4

REPORT INFORMATION
  Report Type: 
  Country: None (occurrence: None)
  Receive Date: 20111207
  Receipt Date: 20111122
  Transmission Date: 20120403
  Serious: Yes (Death, Other)
  Sender: FDA-Public Use
  Company Number: GB-RANBAXY-2011RR-49054

PATIENT
  Sex: Female

DRUGS (3)
  1. FLOXACILLIN SODIUM [Suspect]
     Dosage: 1 G, QID
     Route: 042
  2. ACETAMINOPHEN [Suspect]
     Indication: PRODUCT USED FOR UNKNOWN INDICATION
     Dosage: 1 G, QID
     Route: 065
  3. FLOXACILLIN SODIUM [Suspect]
     Indication: SEPSIS
     Dosage: 500 MG, QID
     Route: 048

REACTIONS (4)
  - DRUG INTERACTION [None]
  - ATRIAL FIBRILLATION [None]
  - HYPOKALAEMIA [None]
  - METABOLIC ACIDOSIS [None]
